FAERS Safety Report 7106280-6 (Version None)
Quarter: 2010Q4

REPORT INFORMATION
  Report Type: 
  Country: None (occurrence: None)
  Receive Date: 20101116
  Receipt Date: 20101001
  Transmission Date: 20110411
  Serious: Yes (Other)
  Sender: FDA-Public Use
  Company Number: PHHY2010US65490

PATIENT
  Sex: Female

DRUGS (2)
  1. RECLAST [Suspect]
     Dosage: UNK
     Dates: start: 20100902
  2. NEXIUM [Concomitant]

REACTIONS (14)
  - ALOPECIA [None]
  - BONE PAIN [None]
  - CHEST DISCOMFORT [None]
  - EAR INFECTION [None]
  - FATIGUE [None]
  - FULL BLOOD COUNT DECREASED [None]
  - HEADACHE [None]
  - IMPAIRED WORK ABILITY [None]
  - INFLUENZA LIKE ILLNESS [None]
  - NEUTROPHIL COUNT DECREASED [None]
  - PHARYNGITIS [None]
  - RESPIRATORY TRACT INFECTION [None]
  - SINUSITIS [None]
  - SOMNOLENCE [None]
